FAERS Safety Report 9350374 (Version 1)
Quarter: 2013Q2

REPORT INFORMATION
  Report Type: Spontaneous
  Country: US (occurrence: None)
  Receive Date: 20130613
  Receipt Date: 20130613
  Transmission Date: 20140414
  Serious: Yes (Hospitalization)
  Sender: FDA-Public Use
  Company Number: None

PATIENT
  Age: 30 Year
  Sex: Male
  Weight: 85.5 kg

DRUGS (4)
  1. ARIPIPRAZOLE [Suspect]
     Indication: POST-TRAUMATIC STRESS DISORDER
     Dosage: 20 MG AT BEDTIME PO
     Route: 048
     Dates: start: 20130211, end: 20130419
  2. ARIPIPRAZOLE [Suspect]
     Indication: HALLUCINATION
     Dosage: 20 MG AT BEDTIME PO
     Route: 048
     Dates: start: 20130211, end: 20130419
  3. ARIPIPRAZOLE [Suspect]
     Indication: POST-TRAUMATIC STRESS DISORDER
     Dosage: 20 MG AT BEDTIME PO
     Route: 048
     Dates: start: 20130211, end: 20130419
  4. ARIPIPRAZOLE [Suspect]
     Indication: HALLUCINATION
     Dosage: 20 MG AT BEDTIME PO
     Route: 048
     Dates: start: 20130211, end: 20130419

REACTIONS (1)
  - Hallucination [None]
